FAERS Safety Report 9423106 (Version 1)
Quarter: 2013Q3

REPORT INFORMATION
  Report Type: Spontaneous
  Country: GB (occurrence: GB)
  Receive Date: 20130726
  Receipt Date: 20130726
  Transmission Date: 20140515
  Serious: Yes (Other)
  Sender: FDA-Public Use
  Company Number: GB-PFIZER INC-2013216979

PATIENT
  Age: 46 Year
  Sex: Male

DRUGS (2)
  1. CHAMPIX [Suspect]
     Dosage: 0.5 MG, 2X/DAY
     Route: 048
     Dates: start: 20130619, end: 20130626
  2. LISINOPRIL [Concomitant]

REACTIONS (3)
  - Mood altered [Recovered/Resolved]
  - Anger [Unknown]
  - Personality change [Unknown]
